FAERS Safety Report 17281504 (Version 1)
Quarter: 2020Q1

REPORT INFORMATION
  Report Type: Spontaneous
  Country: US (occurrence: US)
  Receive Date: 20200117
  Receipt Date: 20200117
  Transmission Date: 20200409
  Serious: No
  Sender: FDA-Public Use
  Company Number: US-ALLERGAN-1904593US

PATIENT
  Sex: Female

DRUGS (8)
  1. LEXAPRO [Suspect]
     Active Substance: ESCITALOPRAM OXALATE
     Indication: PANIC DISORDER
     Dosage: 20 MG, UNK
     Route: 048
     Dates: end: 201501
  2. SERTRALINE [Concomitant]
     Active Substance: SERTRALINE HYDROCHLORIDE
     Indication: PANIC DISORDER
     Dosage: 150 MG, QD
     Route: 048
     Dates: start: 201411, end: 201412
  3. REMERON [Concomitant]
     Active Substance: MIRTAZAPINE
     Indication: MAJOR DEPRESSION
  4. SERTRALINE [Concomitant]
     Active Substance: SERTRALINE HYDROCHLORIDE
     Indication: MAJOR DEPRESSION
  5. ATIVAN [Concomitant]
     Active Substance: LORAZEPAM
     Indication: PANIC ATTACK
     Dosage: 1 MG, UNK
     Route: 048
     Dates: end: 201501
  6. REMERON [Concomitant]
     Active Substance: MIRTAZAPINE
     Indication: PANIC DISORDER
     Dosage: 30 MG, UNK
     Route: 065
     Dates: start: 201411, end: 201501
  7. LEXAPRO [Suspect]
     Active Substance: ESCITALOPRAM OXALATE
     Indication: MAJOR DEPRESSION
     Dosage: 10 MG, QD
     Route: 048
     Dates: start: 201410
  8. ATIVAN [Concomitant]
     Active Substance: LORAZEPAM
     Dosage: 0.5 MG, QD
     Route: 048
     Dates: start: 201411

REACTIONS (4)
  - Anxiety [Unknown]
  - Drug ineffective [Unknown]
  - Off label use [Unknown]
  - Panic reaction [Unknown]
